FAERS Safety Report 4483373-3 (Version None)
Quarter: 2004Q4

REPORT INFORMATION
  Report Type: 
  Country: None (occurrence: None)
  Receive Date: 20041020
  Receipt Date: 20040930
  Transmission Date: 20050328
  Serious: Yes (Hospitalization)
  Sender: FDA-Public Use
  Company Number: FR_040904794

PATIENT
  Age: 78 Year
  Sex: Female
  Weight: 53 kg

DRUGS (4)
  1. PROZAC [Suspect]
     Indication: DEPRESSION
     Dosage: 20 MG/1 DAY
     Dates: start: 20030101, end: 20040730
  2. EXELON [Concomitant]
  3. STABLON (TIANEPTINE) [Concomitant]
  4. ZOLPIDEM TARTRATE [Concomitant]

REACTIONS (8)
  - AGITATION [None]
  - BLOOD CREATINE INCREASED [None]
  - BLOOD UREA INCREASED [None]
  - CONFUSIONAL STATE [None]
  - CREATININE RENAL CLEARANCE DECREASED [None]
  - DISORIENTATION [None]
  - GENERAL PHYSICAL HEALTH DETERIORATION [None]
  - MYOCLONUS [None]
